FAERS Safety Report 23720368 (Version 1)
Quarter: 2024Q2

REPORT INFORMATION
  Report Type: Spontaneous
  Country: CN (occurrence: CN)
  Receive Date: 20240408
  Receipt Date: 20240408
  Transmission Date: 20240716
  Serious: Yes (Life-Threatening, Hospitalization, Disabling)
  Sender: FDA-Public Use
  Company Number: CN-Eisai-EC-2024-162849

PATIENT
  Age: 24 Year
  Sex: Male
  Weight: 45.5 kg

DRUGS (9)
  1. LENVATINIB [Suspect]
     Active Substance: LENVATINIB
     Indication: Neoplasm
     Route: 048
     Dates: start: 20211215, end: 20220521
  2. LENVATINIB [Suspect]
     Active Substance: LENVATINIB
     Route: 048
     Dates: start: 20220818, end: 20230716
  3. LENVATINIB [Suspect]
     Active Substance: LENVATINIB
     Route: 048
     Dates: start: 20231218, end: 20240224
  4. KEYTRUDA [Suspect]
     Active Substance: PEMBROLIZUMAB
     Indication: Neoplasm
     Route: 041
     Dates: start: 20220729, end: 20220729
  5. SINTILIMAB [Suspect]
     Active Substance: SINTILIMAB
     Indication: Neoplasm
     Route: 041
     Dates: start: 20211215, end: 20220521
  6. SINTILIMAB [Suspect]
     Active Substance: SINTILIMAB
     Route: 041
     Dates: start: 20220818, end: 20230716
  7. SINTILIMAB [Suspect]
     Active Substance: SINTILIMAB
     Route: 041
     Dates: start: 20230717, end: 20231011
  8. CAMRELIZUMAB [Suspect]
     Active Substance: CAMRELIZUMAB
     Indication: Neoplasm
     Route: 041
     Dates: start: 20231102, end: 20240226
  9. BEVACIZUMAB [Concomitant]
     Active Substance: BEVACIZUMAB
     Indication: Neoplasm
     Route: 041
     Dates: start: 20230717, end: 20231127

REACTIONS (7)
  - Immune-mediated enterocolitis [Recovering/Resolving]
  - Malignant neoplasm progression [Unknown]
  - Gastric varices [Unknown]
  - Gastrointestinal disorder [Unknown]
  - Colitis [Unknown]
  - Chronic gastritis [Unknown]
  - Varices oesophageal [Unknown]

NARRATIVE: CASE EVENT DATE: 20220521
